FAERS Safety Report 8742954 (Version 6)
Quarter: 2012Q4

REPORT INFORMATION
  Report Type: 
  Country: DE (occurrence: DE)
  Receive Date: 20120824
  Receipt Date: 20121102
  Transmission Date: 20130627
  Serious: Yes (Death, Hospitalization)
  Sender: FDA-Public Use
  Company Number: PHHO2012DE012268

PATIENT
  Age: 64 Year
  Sex: Female
  Weight: 95 kg

DRUGS (3)
  1. EVEROLIMUS [Suspect]
     Indication: BREAST CANCER METASTATIC
     Dosage: 10 mg, UNK
     Route: 048
     Dates: start: 20120809, end: 20120820
  2. EVEROLIMUS [Suspect]
     Dosage: 10 mg, UNK
     Route: 048
     Dates: start: 20120904, end: 20121004
  3. EXEMESTANE [Suspect]
     Indication: BREAST CANCER METASTATIC
     Dosage: 25 mg, UNK
     Route: 048
     Dates: start: 20120809, end: 20121004

REACTIONS (6)
  - Renal failure acute [Fatal]
  - General physical health deterioration [Recovered/Resolved]
  - Urosepsis [Unknown]
  - Infection [Recovered/Resolved]
  - Fatigue [Recovered/Resolved]
  - Cardiovascular insufficiency [Unknown]
